FAERS Safety Report 9363971 (Version 1)
Quarter: 2013Q2

REPORT INFORMATION
  Report Type: Report from Study
  Country: DE (occurrence: DE)
  Receive Date: 20130624
  Receipt Date: 20130624
  Transmission Date: 20140414
  Serious: Yes (Hospitalization)
  Sender: FDA-Public Use
  Company Number: DE-BAXTER-2013BAX007981

PATIENT
  Sex: Female

DRUGS (9)
  1. ENDOXAN 1G [Suspect]
     Indication: B-CELL LYMPHOMA
     Route: 042
     Dates: start: 20130207, end: 20130207
  2. RITUXIMAB [Suspect]
     Indication: B-CELL LYMPHOMA
     Route: 042
     Dates: start: 20130206, end: 20130206
  3. DOXORUBICIN [Suspect]
     Indication: B-CELL LYMPHOMA
     Route: 042
     Dates: start: 20130207, end: 20130207
  4. VINCRISTINE [Suspect]
     Indication: B-CELL LYMPHOMA
     Route: 042
     Dates: start: 20130207, end: 20130207
  5. PREDNISONE [Suspect]
     Indication: B-CELL LYMPHOMA
     Route: 065
     Dates: start: 20130207, end: 20130214
  6. PREDNISONE [Suspect]
     Route: 065
     Dates: start: 20130207, end: 20130214
  7. PREDNISONE [Suspect]
     Route: 065
     Dates: start: 20130207, end: 20130214
  8. PREDNISONE [Suspect]
     Route: 065
     Dates: start: 20130207, end: 20130214
  9. PEGFILGRASTIM [Suspect]
     Indication: B-CELL LYMPHOMA
     Route: 058
     Dates: start: 20130210, end: 20130210

REACTIONS (2)
  - Mucosal inflammation [Recovered/Resolved]
  - Sepsis [Recovered/Resolved]
